FAERS Safety Report 5291838-X (Version None)
Quarter: 2007Q2

REPORT INFORMATION
  Report Type: 
  Country: None (occurrence: None)
  Receive Date: 20070406
  Receipt Date: 20070406
  Transmission Date: 20071010
  Serious: Yes (Hospitalization, Disabling, Other)
  Sender: FDA-Public Use
  Company Number: None

PATIENT
  Sex: Female

DRUGS (1)
  1. ZELNORM [Suspect]
     Indication: CONSTIPATION
     Dosage: 1 X3 DAY
     Dates: start: 20051213

REACTIONS (5)
  - ALOPECIA [None]
  - DEATH OF RELATIVE [None]
  - FIBROMYALGIA [None]
  - MALAISE [None]
  - PAIN [None]
